FAERS Safety Report 24925648 (Version 1)
Quarter: 2025Q1

REPORT INFORMATION
  Report Type: Report from Study
  Country: IT (occurrence: IT)
  Receive Date: 20250204
  Receipt Date: 20250204
  Transmission Date: 20250408
  Serious: Yes (Death, Other)
  Sender: JOHNSON AND JOHNSON
  Company Number: IT-JNJFOC-20220820980

PATIENT

DRUGS (3)
  1. IMBRUVICA [Suspect]
     Active Substance: IBRUTINIB
     Indication: Chronic lymphocytic leukaemia
     Route: 048
     Dates: start: 201401, end: 202103
  2. TRIMETHOPRIM HYDROCHLORIDE [Concomitant]
     Active Substance: TRIMETHOPRIM HYDROCHLORIDE
  3. ACYCLOVIR [Concomitant]
     Active Substance: ACYCLOVIR

REACTIONS (13)
  - Sudden cardiac death [Fatal]
  - Neutropenia [Unknown]
  - Atrial fibrillation [Unknown]
  - Cardiac failure [Unknown]
  - Haemorrhagic diathesis [Unknown]
  - Pneumonia [Unknown]
  - Anaemia [Unknown]
  - Infection [Unknown]
  - Haemorrhage [Unknown]
  - Respiratory tract infection [Unknown]
  - Second primary malignancy [Unknown]
  - Acute coronary syndrome [Unknown]
  - Hypertension [Unknown]
